FAERS Safety Report 9120963 (Version 2)
Quarter: 2013Q1

REPORT INFORMATION
  Report Type: Spontaneous
  Country: US (occurrence: US)
  Receive Date: 20130226
  Receipt Date: 20130314
  Transmission Date: 20140127
  Serious: No
  Sender: FDA-Public Use
  Company Number: US-PFIZER INC-2013065405

PATIENT
  Age: 47 Year
  Sex: Female

DRUGS (4)
  1. PRISTIQ [Suspect]
     Dosage: 100 MG, 1X/DAY, EVERY MORNING
  2. LAMICTAL [Concomitant]
     Dosage: UNK
  3. XANAX [Concomitant]
     Dosage: UNK
  4. LITHIUM CARBONATE [Concomitant]
     Dosage: UNK

REACTIONS (1)
  - Malaise [Unknown]
